FAERS Safety Report 8139312-7 (Version None)
Quarter: 2012Q1

REPORT INFORMATION
  Report Type: 
  Country: None (occurrence: None)
  Receive Date: 20120215
  Receipt Date: 20120208
  Transmission Date: 20120608
  Serious: Yes (Death)
  Sender: FDA-Public Use
  Company Number: PHHY2012US011966

PATIENT
  Age: 57 Year
  Sex: Male

DRUGS (3)
  1. PREDNISONE TAB [Suspect]
     Indication: LUNG TRANSPLANT
     Dosage: UNK UKN, UNK
  2. MYCOPHENOLATE MOFETIL [Suspect]
     Indication: LUNG TRANSPLANT
     Dosage: UNK UKN, UNK
  3. TACROLIMUS [Suspect]
     Indication: LUNG TRANSPLANT
     Dosage: UNK UKN, UNK

REACTIONS (6)
  - FUNGAL INFECTION [None]
  - DYSPNOEA [None]
  - PULMONARY MASS [None]
  - FUNGAEMIA [None]
  - LUNG INFECTION [None]
  - LUNG NEOPLASM [None]
